FAERS Safety Report 15724267 (Version 1)
Quarter: 2018Q4

REPORT INFORMATION
  Report Type: Spontaneous
  Country: US (occurrence: US)
  Receive Date: 20181214
  Receipt Date: 20181214
  Transmission Date: 20190205
  Serious: No
  Sender: FDA-Public Use
  Company Number: US-GLAXOSMITHKLINE-US2018223910

PATIENT
  Age: 27 Year
  Sex: Female

DRUGS (1)
  1. NICODERM CQ [Suspect]
     Active Substance: NICOTINE
     Indication: PRODUCT USED FOR UNKNOWN INDICATION
     Dosage: 14 MG, UNK
     Route: 062
     Dates: start: 20181209, end: 20181210

REACTIONS (4)
  - Application site rash [Unknown]
  - Application site pruritus [Recovered/Resolved]
  - Application site pain [Unknown]
  - Application site reaction [Unknown]
